FAERS Safety Report 4633598-9 (Version None)
Quarter: 2005Q2

REPORT INFORMATION
  Report Type: 
  Country: None (occurrence: None)
  Receive Date: 20050412
  Receipt Date: 20050412
  Transmission Date: 20051028
  Serious: Yes (Life-Threatening, Hospitalization)
  Sender: FDA-Public Use
  Company Number: None

PATIENT
  Age: 79 Year
  Sex: Male
  Weight: 62.1 kg

DRUGS (14)
  1. ULTRAM [Suspect]
  2. TRAVOPROST [Concomitant]
  3. DORZOLAMIDE/TIMOLOL [Concomitant]
  4. METOPROLOL TARTRATE [Concomitant]
  5. FORMOTEROL INH [Concomitant]
  6. BRIMONIDINE [Concomitant]
  7. ACETAMINOPHEN [Concomitant]
  8. NITROGLYCERIN TRANSDERMAL PATCH [Concomitant]
  9. ALENDRONATE SODIUM [Concomitant]
  10. OMEPRAZOLE [Concomitant]
  11. LISINOPRIL [Concomitant]
  12. IPRATROPIUM/ALBUTEROL INH [Concomitant]
  13. SIMVASTATIN [Concomitant]
  14. RANITIDINE [Concomitant]

REACTIONS (1)
  - RESPIRATORY DEPRESSION [None]
